FAERS Safety Report 8273801-X (Version None)
Quarter: 2012Q2

REPORT INFORMATION
  Report Type: 
  Country: None (occurrence: None)
  Receive Date: 20120411
  Receipt Date: 20120405
  Transmission Date: 20120825
  Serious: Yes (Other)
  Sender: FDA-Public Use
  Company Number: PHEH2012US006531

PATIENT
  Sex: Female

DRUGS (2)
  1. GILENYA [Suspect]
     Indication: MULTIPLE SCLEROSIS
     Dosage: 0.5 MG, QD
     Route: 048
     Dates: start: 20111201
  2. TOPAMAX [Concomitant]
     Indication: CONVULSION

REACTIONS (4)
  - PAIN [None]
  - CONVULSION [None]
  - CHILLS [None]
  - COUGH [None]
